FAERS Safety Report 11524660 (Version 3)
Quarter: 2016Q1

REPORT INFORMATION
  Report Type: Spontaneous
  Country: US (occurrence: US)
  Receive Date: 20150918
  Receipt Date: 20160217
  Transmission Date: 20160525
  Serious: Yes (Other)
  Sender: FDA-Public Use
  Company Number: US-LUNDBECK-DKLU2003282

PATIENT
  Sex: Male

DRUGS (7)
  1. LAMICTAL [Concomitant]
     Active Substance: LAMOTRIGINE
     Indication: PRODUCT USED FOR UNKNOWN INDICATION
     Route: 065
  2. ONFI [Suspect]
     Active Substance: CLOBAZAM
     Dosage: WEANING DOSE
     Route: 065
     Dates: start: 20151028, end: 201511
  3. ONFI [Suspect]
     Active Substance: CLOBAZAM
     Dosage: AM
     Route: 048
     Dates: end: 20151027
  4. ONFI [Suspect]
     Active Substance: CLOBAZAM
     Route: 065
     Dates: start: 201407, end: 20151027
  5. KEPPRA [Concomitant]
     Active Substance: LEVETIRACETAM
     Indication: PRODUCT USED FOR UNKNOWN INDICATION
     Route: 065
  6. ONFI [Suspect]
     Active Substance: CLOBAZAM
     Indication: SEIZURE
     Route: 048
     Dates: start: 201408
  7. ONFI [Suspect]
     Active Substance: CLOBAZAM
     Dosage: PM
     Route: 048
     Dates: end: 20151027

REACTIONS (3)
  - Atonic seizures [Recovered/Resolved]
  - Drug ineffective [Unknown]
  - Change in seizure presentation [Recovered/Resolved]

NARRATIVE: CASE EVENT DATE: 2015
